FAERS Safety Report 21161051 (Version 2)
Quarter: 2022Q3

REPORT INFORMATION
  Report Type: Spontaneous
  Country: US (occurrence: US)
  Receive Date: 20220802
  Receipt Date: 20220809
  Transmission Date: 20221027
  Serious: No
  Sender: FDA-Public Use
  Company Number: US-BAYER-2022A106400

PATIENT
  Age: 37 Year
  Sex: Female

DRUGS (1)
  1. MIRALAX [Suspect]
     Active Substance: POLYETHYLENE GLYCOL 3350
     Dosage: 1 DF (AS NEEDED BASIS)
     Route: 048
     Dates: start: 202205

REACTIONS (3)
  - Maternal exposure during pregnancy [Unknown]
  - Product odour abnormal [None]
  - Product taste abnormal [None]

NARRATIVE: CASE EVENT DATE: 20220101
